FAERS Safety Report 23595861 (Version 2)
Quarter: 2024Q1

REPORT INFORMATION
  Report Type: Spontaneous
  Country: JP (occurrence: JP)
  Receive Date: 20240305
  Receipt Date: 20240307
  Transmission Date: 20240410
  Serious: Yes (Life-Threatening, Hospitalization, Disabling, Other)
  Sender: FDA-Public Use
  Company Number: JP-BRISTOL-MYERS SQUIBB COMPANY-2024-034951

PATIENT
  Age: 69 Year
  Sex: Male
  Weight: 56 kg

DRUGS (8)
  1. PACLITAXEL [Suspect]
     Active Substance: PACLITAXEL
     Indication: Non-small cell lung cancer
     Dosage: NUMBER OF SEPARATE DOSAGES UNKNOWN
     Dates: start: 20230616, end: 20230623
  2. PACLITAXEL [Suspect]
     Active Substance: PACLITAXEL
     Dosage: NUMBER OF SEPARATE DOSAGES UNKNOWN
     Dates: start: 20230707, end: 20230707
  3. PACLITAXEL [Suspect]
     Active Substance: PACLITAXEL
     Dosage: NUMBER OF SEPARATE DOSAGES UNKNOWN
     Dates: start: 20230803, end: 20230803
  4. IMFINZI [Suspect]
     Active Substance: DURVALUMAB
     Indication: Non-small cell lung cancer
     Dosage: 5
     Route: 041
     Dates: start: 20230616, end: 20230802
  5. IMJUDO [Suspect]
     Active Substance: TREMELIMUMAB\TREMELIMUMAB-ACTL
     Indication: Non-small cell lung cancer
     Route: 041
     Dates: start: 20230616, end: 20230802
  6. CARBOPLATIN [Suspect]
     Active Substance: CARBOPLATIN
     Indication: Non-small cell lung cancer
     Dosage: NUMBER OF SEPARATE DOSAGES UNKNOWN
     Dates: start: 20230616, end: 20230616
  7. CARBOPLATIN [Suspect]
     Active Substance: CARBOPLATIN
     Dosage: NUMBER OF SEPARATE DOSAGES UNKNOWN
     Dates: start: 20230707, end: 20230707
  8. CARBOPLATIN [Suspect]
     Active Substance: CARBOPLATIN
     Dosage: NUMBER OF SEPARATE DOSAGES UNKNOWN
     Dates: start: 20230803, end: 20230803

REACTIONS (8)
  - Pneumonia [Not Recovered/Not Resolved]
  - Neutrophil count decreased [Recovered/Resolved]
  - Febrile neutropenia [Recovered/Resolved]
  - Colon cancer [Unknown]
  - Anaemia [Recovering/Resolving]
  - Decreased appetite [Not Recovered/Not Resolved]
  - Lower gastrointestinal haemorrhage [Recovered/Resolved]
  - Obstructive airways disorder [Not Recovered/Not Resolved]

NARRATIVE: CASE EVENT DATE: 20230622
